FAERS Safety Report 5749996-6 (Version None)
Quarter: 2008Q2

REPORT INFORMATION
  Report Type: 
  Country: None (occurrence: None)
  Receive Date: 20080527
  Receipt Date: 20080519
  Transmission Date: 20081010
  Serious: Yes (Other)
  Sender: FDA-Public Use
  Company Number: US-AMGEN-QUU280853

PATIENT
  Sex: Female

DRUGS (8)
  1. ARANESP [Suspect]
     Indication: ANAEMIA
     Route: 058
  2. LASIX [Concomitant]
  3. NEXIUM [Concomitant]
  4. IRON [Concomitant]
  5. PLAVIX [Concomitant]
  6. GABAPENTIN [Concomitant]
  7. TOPROL-XL [Concomitant]
  8. CITALOPRAM HYDROBROMIDE [Concomitant]

REACTIONS (2)
  - CAROTID ARTERY OCCLUSION [None]
  - MALAISE [None]
